FAERS Safety Report 7352498-7 (Version None)
Quarter: 2011Q1

REPORT INFORMATION
  Report Type: 
  Country: None (occurrence: None)
  Receive Date: 20110315
  Receipt Date: 20110310
  Transmission Date: 20110831
  Serious: Yes (Life-Threatening, Other)
  Sender: FDA-Public Use
  Company Number: PHHO2011US04447

PATIENT
  Sex: Female
  Weight: 91 kg

DRUGS (14)
  1. CERTICAN [Suspect]
     Indication: RENAL TRANSPLANT
     Dosage: 0.75 MG, BID
     Route: 048
     Dates: start: 20110220, end: 20110224
  2. ZOCOR [Concomitant]
     Indication: HYPERCHOLESTEROLAEMIA
  3. PEPCID [Concomitant]
     Indication: GASTROOESOPHAGEAL REFLUX DISEASE
  4. TACROLIMUS [Concomitant]
     Dosage: 3 MG, BID
     Route: 048
     Dates: start: 20110224, end: 20110304
  5. DULOXETINE [Concomitant]
     Indication: NEUROPATHY PERIPHERAL
  6. ASPIRIN [Concomitant]
     Indication: CARDIOVASCULAR EVENT PROPHYLAXIS
  7. PLAVIX [Concomitant]
     Indication: CARDIOVASCULAR EVENT PROPHYLAXIS
  8. CERTICAN [Suspect]
     Dosage: 0.25 MG, BID
     Route: 048
     Dates: start: 20110227, end: 20110303
  9. TACROLIMUS [Concomitant]
     Dosage: 2 MG, BID
     Route: 048
     Dates: start: 20110304
  10. PREDNISONE [Concomitant]
     Indication: RENAL TRANSPLANT
     Dosage: 5 MG, DAILY
     Route: 048
     Dates: start: 20110224
  11. VALCYTE [Concomitant]
     Indication: ANTIVIRAL PROPHYLAXIS
  12. TACROLIMUS [Concomitant]
     Indication: RENAL TRANSPLANT
     Dosage: 5 MG, BID
     Route: 048
     Dates: start: 20110223, end: 20110224
  13. CERTICAN [Suspect]
     Dosage: 0.25 MG, BID
     Route: 048
     Dates: start: 20110224, end: 20110224
  14. CERTICAN [Suspect]
     Dosage: 0.75 MG, BID
     Route: 048
     Dates: start: 20110303, end: 20110307

REACTIONS (6)
  - HYPERKALAEMIA [None]
  - MENTAL STATUS CHANGES [None]
  - RESPIRATORY DISTRESS [None]
  - ELECTROCARDIOGRAM ABNORMAL [None]
  - INCORRECT DOSE ADMINISTERED [None]
  - DRUG ADMINISTRATION ERROR [None]
